FAERS Safety Report 8213138-8 (Version None)
Quarter: 2012Q1

REPORT INFORMATION
  Report Type: 
  Country: None (occurrence: None)
  Receive Date: 20120315
  Receipt Date: 20120308
  Transmission Date: 20120608
  Serious: Yes (Other)
  Sender: FDA-Public Use
  Company Number: AT-PFIZER INC-2012063220

PATIENT
  Age: 62 Year
  Sex: Female

DRUGS (21)
  1. ALPRAZOLAM [Suspect]
     Dosage: 0.5 MG, UNK
  2. FLUOXETINE [Suspect]
     Dosage: 40 MG, UNK
  3. ASPIRIN [Suspect]
     Dosage: 100 MG, UNK
  4. NITROGLYCERIN [Suspect]
     Dosage: UNK
     Route: 062
  5. FULVESTRANT [Concomitant]
  6. POLYETHYLENE GLYCOL 3350 [Suspect]
     Dosage: UNK
  7. EXEMESTANE [Concomitant]
  8. AMITRIPTYLINE HCL [Suspect]
     Dosage: 100 MG/DAY
  9. FENTANYL [Suspect]
     Dosage: 75 UG IN 72 HOURS
     Route: 062
  10. DIAZEPAM [Suspect]
     Dosage: 2 X 5MG
  11. ANASTROZOLE [Suspect]
     Indication: HORMONE THERAPY
     Dosage: UNK
  12. GABAPENTIN [Suspect]
     Indication: BONE PAIN
     Dosage: OVER 3 DAYS UP TO 900 MG/DAY
  13. SIMVASTATIN [Suspect]
     Dosage: 40 MG, UNK
  14. FENTANYL [Suspect]
     Dosage: 150 UG IN 72 HOURS
     Route: 062
  15. LEVOTHYROXINE SODIUM [Suspect]
     Dosage: 150 UG, UNK
  16. HYDROMORPHONE HCL [Suspect]
     Dosage: 5.2 MG, UNK
     Route: 048
  17. BIPHOSPHONATE [Concomitant]
  18. DOXORUBICIN HYDROCHLORIDE [Concomitant]
  19. METOPROLOL TARTRATE [Suspect]
     Dosage: 47.5 MG, UNK
  20. ANASTROZOLE [Suspect]
     Indication: NEOPLASM MALIGNANT
  21. METAMIZOLE [Suspect]
     Dosage: 4 G, UNK

REACTIONS (2)
  - DELIRIUM [None]
  - SEPSIS [None]
